FAERS Safety Report 7152417-2 (Version None)
Quarter: 2010Q4

REPORT INFORMATION
  Report Type: 
  Country: None (occurrence: None)
  Receive Date: 20101124
  Receipt Date: 20101117
  Transmission Date: 20110411
  Serious: Yes (Life-Threatening, Hospitalization)
  Sender: FDA-Public Use
  Company Number: CAP10000437

PATIENT
  Sex: Female

DRUGS (7)
  1. MACROBID [Suspect]
     Indication: PRODUCT USED FOR UNKNOWN INDICATION
     Dosage: 100 MG TWICE DAILY, ORAL
     Route: 048
  2. ATACAND [Concomitant]
  3. CARDIZEM [Concomitant]
  4. ASPIRIN [Concomitant]
  5. HYDROCHLOROTHIAZIDE [Concomitant]
  6. PREMARIN [Concomitant]
  7. ZOCOR [Concomitant]

REACTIONS (4)
  - ACUTE PULMONARY OEDEMA [None]
  - CHOKING [None]
  - EMPHYSEMA [None]
  - FATIGUE [None]
